FAERS Safety Report 8514955-7 (Version None)
Quarter: 2012Q3

REPORT INFORMATION
  Report Type: 
  Country: None (occurrence: None)
  Receive Date: 20120717
  Receipt Date: 20120706
  Transmission Date: 20120928
  Serious: Yes (Other)
  Sender: FDA-Public Use
  Company Number: JP-VERTEX PHARMACEUTICALS INC.-AE-2012-008344

PATIENT
  Age: 52 Year
  Sex: Female

DRUGS (11)
  1. PEGINTERFERON ALFA-2B [Concomitant]
     Route: 058
     Dates: start: 20120626
  2. RIBAVIRIN [Concomitant]
     Route: 048
     Dates: start: 20120601, end: 20120611
  3. RIBAVIRIN [Concomitant]
     Route: 048
     Dates: start: 20120612, end: 20120618
  4. PEGINTERFERON ALFA-2B [Concomitant]
     Route: 058
     Dates: start: 20120530, end: 20120618
  5. RIBAVIRIN [Concomitant]
     Route: 048
     Dates: start: 20120619
  6. TELAVIC (TELAPREVIR) [Suspect]
     Route: 048
     Dates: start: 20120531
  7. PEGINTERFERON ALFA-2B [Concomitant]
     Route: 058
     Dates: start: 20120619, end: 20120625
  8. MUCOSTA [Concomitant]
     Route: 048
     Dates: start: 20120523
  9. TELAVIC (TELAPREVIR) [Suspect]
     Indication: HEPATITIS C
     Route: 048
     Dates: start: 20120523, end: 20120530
  10. RIBAVIRIN [Concomitant]
     Indication: HEPATITIS C
     Route: 048
     Dates: start: 20120523, end: 20120530
  11. PEGINTERFERON ALFA-2B [Concomitant]
     Indication: HEPATITIS C
     Route: 058
     Dates: start: 20120523, end: 20120529

REACTIONS (2)
  - RENAL IMPAIRMENT [None]
  - PLATELET COUNT DECREASED [None]
